FAERS Safety Report 10271170 (Version 2)
Quarter: 2014Q3

REPORT INFORMATION
  Report Type: Spontaneous
  Country: US (occurrence: US)
  Receive Date: 20140701
  Receipt Date: 20140701
  Transmission Date: 20150326
  Serious: Yes (Other)
  Sender: FDA-Public Use
  Company Number: US-BAYER-2014-087326

PATIENT
  Age: 61 Year
  Sex: Female

DRUGS (2)
  1. STIVARGA [Suspect]
     Active Substance: REGORAFENIB
     Indication: METASTASES TO LUNG
  2. STIVARGA [Suspect]
     Active Substance: REGORAFENIB
     Indication: COLON CANCER STAGE IV
     Dosage: 160 MG, QD
     Route: 048
     Dates: start: 20140213, end: 20140304

REACTIONS (5)
  - Throat tightness [None]
  - Abdominal pain upper [None]
  - Glossodynia [None]
  - Fatigue [None]
  - Back pain [None]

NARRATIVE: CASE EVENT DATE: 20140304
